FAERS Safety Report 6444719-X (Version None)
Quarter: 2009Q4

REPORT INFORMATION
  Report Type: 
  Country: None (occurrence: None)
  Receive Date: 20091118
  Receipt Date: 20091116
  Transmission Date: 20100525
  Serious: Yes (Hospitalization)
  Sender: FDA-Public Use
  Company Number: A0817300A

PATIENT
  Age: 58 Year
  Sex: Male

DRUGS (18)
  1. AUGMENTIN [Suspect]
     Route: 048
     Dates: start: 20091020
  2. DASATINIB [Suspect]
     Indication: SARCOMA
     Dosage: 70MG TWICE PER DAY
     Route: 048
     Dates: start: 20090407
  3. LOPERAMIDE [Concomitant]
  4. GLUCOSAMINE [Concomitant]
  5. LISINOPRIL [Concomitant]
  6. BENADRYL [Concomitant]
  7. CLARITIN [Concomitant]
  8. METHADONE HCL [Concomitant]
  9. METOCLOPRAMIDE [Concomitant]
  10. COREG [Concomitant]
  11. OXYCODONE HCL [Concomitant]
  12. MIRALAX [Concomitant]
  13. LYRICA [Concomitant]
  14. SIMVASTATIN [Concomitant]
  15. CELEXA [Concomitant]
  16. VITAMIN B-12 [Concomitant]
  17. TYLENOL (CAPLET) [Concomitant]
  18. MULTI-VITAMIN [Concomitant]

REACTIONS (5)
  - ASTHENIA [None]
  - BACTERIAL TEST POSITIVE [None]
  - DIARRHOEA [None]
  - HYPOTENSION [None]
  - PYREXIA [None]
